FAERS Safety Report 8795258 (Version 2)
Quarter: 2015Q2

REPORT INFORMATION
  Report Type: Report from Study
  Country: US (occurrence: US)
  Receive Date: 20120917
  Receipt Date: 20150619
  Transmission Date: 20150821
  Serious: Yes (Death)
  Sender: FDA-Public Use
  Company Number: US-ROCHE-1127478

PATIENT
  Sex: Male
  Weight: 106 kg

DRUGS (11)
  1. DECADRON [Concomitant]
     Active Substance: DEXAMETHASONE
     Route: 042
  2. OXALIPLATIN. [Concomitant]
     Active Substance: OXALIPLATIN
     Route: 042
  3. LEUCOVORIN [Concomitant]
     Active Substance: LEUCOVORIN
     Route: 042
  4. 5-FLUOROURACIL [Concomitant]
     Active Substance: FLUOROURACIL
     Route: 050
  5. NEUPOGEN [Concomitant]
     Active Substance: FILGRASTIM
     Dosage: ON 21/NOV/2005
     Route: 050
  6. ALOXI [Concomitant]
     Active Substance: PALONOSETRON HYDROCHLORIDE
     Route: 042
  7. CAMPTOSAR [Concomitant]
     Active Substance: IRINOTECAN HYDROCHLORIDE
     Route: 042
  8. 5-FLUOROURACIL [Concomitant]
     Active Substance: FLUOROURACIL
     Route: 042
  9. FLU VACCINE [Concomitant]
     Active Substance: INFLUENZA VIRUS VACCINE
  10. DECADRON [Concomitant]
     Active Substance: DEXAMETHASONE
     Route: 042
  11. AVASTIN [Suspect]
     Active Substance: BEVACIZUMAB
     Indication: SMALL INTESTINE CARCINOMA
     Dosage: SUBSEQUENTLY ON 13/SEP/2005, 27/SEP/2005, 12/OCT/2005, 31/OCT/2005, 14/NOV/2005, 29/NOV/2005.
     Route: 042
     Dates: start: 20050829

REACTIONS (2)
  - Off label use [Unknown]
  - Death [Fatal]
